FAERS Safety Report 7064727-8 (Version None)
Quarter: 2010Q4

REPORT INFORMATION
  Report Type: 
  Country: None (occurrence: None)
  Receive Date: 20101027
  Receipt Date: 19900720
  Transmission Date: 20110411
  Serious: Yes (Death, Disabling)
  Sender: FDA-Public Use
  Company Number: US-ROCHE-14220

PATIENT
  Age: 35 Year
  Sex: Male
  Weight: 74.5 kg

DRUGS (3)
  1. CYTOVENE [Suspect]
     Route: 042
     Dates: start: 19900101
  2. DAPSONE [Concomitant]
  3. VIDEX [Concomitant]

REACTIONS (5)
  - CONCOMITANT DISEASE AGGRAVATED [None]
  - CYTOMEGALOVIRUS CHORIORETINITIS [None]
  - DEATH [None]
  - DRUG INEFFECTIVE [None]
  - DRUG RESISTANCE [None]
